FAERS Safety Report 16806746 (Version 2)
Quarter: 2019Q3

REPORT INFORMATION
  Report Type: Spontaneous
  Country: DE (occurrence: DE)
  Receive Date: 20190913
  Receipt Date: 20190923
  Transmission Date: 20191005
  Serious: Yes (Other)
  Sender: FDA-Public Use
  Company Number: DE-ANIPHARMA-2019-DE-000049

PATIENT
  Sex: Male

DRUGS (11)
  1. PANTOPRAZOLE [Concomitant]
     Active Substance: PANTOPRAZOLE
     Dosage: 20 MG DAILY
     Route: 048
  2. JAKAVI [Suspect]
     Active Substance: RUXOLITINIB
     Dosage: 15 MG BID / 15 MG BID
     Route: 048
     Dates: start: 20190321
  3. DEKRISTOL [Concomitant]
     Active Substance: CHOLECALCIFEROL
     Dosage: 2 DF MONTH
     Route: 048
  4. LANTUS [Concomitant]
     Active Substance: INSULIN GLARGINE
     Dosage: 18 IU HS
     Route: 058
  5. SITAGLIPTIN [Concomitant]
     Active Substance: SITAGLIPTIN
     Dosage: 50 MG BID
     Route: 048
  6. RAMIPRIL. [Concomitant]
     Active Substance: RAMIPRIL
     Dosage: 5 MG BID
     Route: 048
  7. ASPIRIN. [Concomitant]
     Active Substance: ASPIRIN
     Dosage: 100 MG DAILY
     Route: 048
     Dates: start: 201606
  8. ATORVASTATIN [Concomitant]
     Active Substance: ATORVASTATIN
     Dosage: 20 MG DAILY
     Route: 048
  9. BICALUTAMIDE. [Suspect]
     Active Substance: BICALUTAMIDE
     Indication: PROSTATIC SPECIFIC ANTIGEN INCREASED
     Dosage: UNK
     Route: 048
     Dates: start: 20190306, end: 20190311
  10. METOPROLOL. [Concomitant]
     Active Substance: METOPROLOL
     Dosage: 95 MG, 1 DF (MORNING) AND 0.05 DF (AT NIGHT), BID
     Route: 048
  11. TORASEMIDE [Concomitant]
     Active Substance: TORSEMIDE
     Dosage: 10 MG DAILY

REACTIONS (2)
  - Acute myeloid leukaemia [Not Recovered/Not Resolved]
  - Anaemia [Unknown]

NARRATIVE: CASE EVENT DATE: 20190311
